FAERS Safety Report 5510233-9 (Version None)
Quarter: 2007Q4

REPORT INFORMATION
  Report Type: 
  Country: None (occurrence: None)
  Receive Date: 20071108
  Receipt Date: 20071030
  Transmission Date: 20080405
  Serious: Yes (Death)
  Sender: FDA-Public Use
  Company Number: US-ROCHE-528585

PATIENT
  Age: 48 Year
  Sex: Male

DRUGS (3)
  1. CELLCEPT [Suspect]
     Indication: LIVER TRANSPLANT
     Route: 065
     Dates: start: 19990101, end: 20040920
  2. UNSPECIFIED MEDICATIONS [Concomitant]
  3. UNSPECIFIED MEDICATIONS [Concomitant]

REACTIONS (3)
  - CONVULSION [None]
  - LIVER ABSCESS [None]
  - PSYCHOTIC DISORDER [None]
